FAERS Safety Report 7867227-8 (Version None)
Quarter: 2011Q4

REPORT INFORMATION
  Report Type: 
  Country: None (occurrence: None)
  Receive Date: 20111028
  Receipt Date: 20111019
  Transmission Date: 20120403
  Serious: Yes (Hospitalization)
  Sender: FDA-Public Use
  Company Number: JP-GLAXOSMITHKLINE-B0757158A

PATIENT
  Age: 41 Year
  Sex: Female

DRUGS (7)
  1. SEROQUEL [Concomitant]
     Route: 048
  2. STRATTERA [Concomitant]
     Route: 048
  3. DEPAKENE [Concomitant]
     Route: 048
  4. CLONAZEPAM [Concomitant]
     Route: 048
  5. LITHIUM CARBONATE [Concomitant]
     Route: 048
  6. PAXIL [Suspect]
     Indication: DEPRESSION
     Route: 048
  7. DEPROMEL [Concomitant]
     Route: 048

REACTIONS (2)
  - ALTERED STATE OF CONSCIOUSNESS [None]
  - OVERDOSE [None]
